FAERS Safety Report 10057954 (Version 1)
Quarter: 2014Q2

REPORT INFORMATION
  Report Type: Spontaneous
  Country: GB (occurrence: None)
  Receive Date: 20140402
  Receipt Date: 20140402
  Transmission Date: 20141212
  Serious: Yes (Congenital Anomaly, Other)
  Sender: FDA-Public Use
  Company Number: AUR-APL-2014-03899

PATIENT
  Sex: Female
  Weight: 3.76 kg

DRUGS (7)
  1. ALENDRONIC ACID (ALENDRONIC ACID) [Suspect]
     Indication: PRODUCT USED FOR UNKNOWN INDICATION
     Route: 064
  2. MONTELUKAST (MONTELUKAST) [Suspect]
     Indication: PRODUCT USED FOR UNKNOWN INDICATION
     Route: 064
  3. FEXOFENADINE [Suspect]
     Indication: ASTHMA
     Route: 064
  4. SPIRIVA [Suspect]
     Indication: ASTHMA
     Route: 064
  5. SYMBICORT [Suspect]
     Indication: ASTHMA
     Route: 064
  6. NPH (ALCOMYXINE) [Suspect]
     Indication: ASTHMA
     Route: 064
  7. XOLAIR (OMALIZUMAB) [Suspect]
     Indication: ASTHMA
     Route: 064

REACTIONS (3)
  - Hearing impaired [None]
  - Foetal exposure during pregnancy [None]
  - Caesarean section [None]
